FAERS Safety Report 10794273 (Version 3)
Quarter: 2015Q2

REPORT INFORMATION
  Report Type: Spontaneous
  Country: GB (occurrence: GB)
  Receive Date: 20150213
  Receipt Date: 20150429
  Transmission Date: 20150821
  Serious: Yes (Other)
  Sender: FDA-Public Use
  Company Number: PHFR2015GB001461

PATIENT
  Sex: Female

DRUGS (1)
  1. ZOMETA [Suspect]
     Active Substance: ZOLEDRONIC ACID
     Indication: PRODUCT USED FOR UNKNOWN INDICATION
     Route: 065

REACTIONS (8)
  - Viral infection [Unknown]
  - Asthenia [Unknown]
  - Depressed mood [Unknown]
  - Fatigue [Unknown]
  - Abdominal pain upper [Unknown]
  - Eating disorder [Unknown]
  - Jaundice [Unknown]
  - Hepatic function abnormal [Unknown]
